FAERS Safety Report 17716101 (Version 2)
Quarter: 2020Q2

REPORT INFORMATION
  Report Type: Spontaneous
  Country: BR (occurrence: BR)
  Receive Date: 20200428
  Receipt Date: 20200614
  Transmission Date: 20200714
  Serious: Yes (Life-Threatening, Hospitalization, Other)
  Sender: FDA-Public Use
  Company Number: BR-AMGEN-BRASP2020068185

PATIENT
  Age: 39 Year
  Sex: Female
  Weight: 73.4 kg

DRUGS (6)
  1. NEULASTIM [Suspect]
     Active Substance: PEGFILGRASTIM
     Indication: PROPHYLAXIS
     Dosage: 6 MILLIGRAM, AFTER CHEMO (24 HOURS AFTER THE ADMINISTRATION OF CHEMOTHERAPY)
     Route: 058
     Dates: start: 20200117
  2. FILGRASTIM [Suspect]
     Active Substance: FILGRASTIM
     Indication: FEBRILE NEUTROPENIA
     Dosage: 300 MICROGRAM
     Route: 065
     Dates: start: 20200125, end: 20200127
  3. FAULDOXO [Suspect]
     Active Substance: DOXORUBICIN HYDROCHLORIDE
     Indication: BREAST CANCER FEMALE
     Dosage: 60 MILLIGRAM/SQ. METER, EVERY 15 DAYS
     Route: 065
     Dates: start: 20200116
  4. GENUXAL [Suspect]
     Active Substance: CYCLOPHOSPHAMIDE
     Indication: BREAST CANCER FEMALE
     Dosage: 600 MILLIGRAM/SQ. METER, EVERY 15 DAYS
     Route: 065
     Dates: start: 20200116
  5. GENUXAL [Suspect]
     Active Substance: CYCLOPHOSPHAMIDE
     Dosage: 20% DOSE REDUCTION, EVERY 15 DAYS
     Route: 065
     Dates: start: 20200206, end: 20200304
  6. FAULDOXO [Suspect]
     Active Substance: DOXORUBICIN HYDROCHLORIDE
     Dosage: 20% DOSE REDUCTION, EVERY 15 DAYS
     Route: 065
     Dates: start: 20200206, end: 20200304

REACTIONS (4)
  - Anaemia [Recovered/Resolved]
  - Leukopenia [Recovered/Resolved]
  - Febrile neutropenia [Recovered/Resolved]
  - Urinary tract infection [Unknown]

NARRATIVE: CASE EVENT DATE: 202001
